FAERS Safety Report 7168348-8 (Version None)
Quarter: 2010Q4

REPORT INFORMATION
  Report Type: 
  Country: None (occurrence: None)
  Receive Date: 20101216
  Receipt Date: 20101213
  Transmission Date: 20110411
  Serious: Yes (Hospitalization)
  Sender: FDA-Public Use
  Company Number: FR-MERCK-1012FRA00056

PATIENT
  Age: 89 Year
  Sex: Female

DRUGS (5)
  1. ZETIA [Suspect]
     Route: 048
     Dates: start: 20100601, end: 20101201
  2. ATENOLOL [Concomitant]
     Route: 065
  3. PERINDOPRIL ARGININE [Concomitant]
     Route: 065
  4. ASPIRIN LYSINE [Concomitant]
     Route: 065
  5. FLUINDIONE [Concomitant]
     Route: 065

REACTIONS (2)
  - PANCREATITIS [None]
  - PULMONARY EMBOLISM [None]
